FAERS Safety Report 26140066 (Version 2)
Quarter: 2025Q4

REPORT INFORMATION
  Report Type: Spontaneous
  Country: US (occurrence: US)
  Receive Date: 20251210
  Receipt Date: 20251216
  Transmission Date: 20260118
  Serious: Yes (Other)
  Sender: MERCK SHARP & DOHME LLC
  Company Number: US-AstrazenecaRSG-7808-D7632C00001(Prod)000002

PATIENT
  Age: 70 Year
  Sex: Female
  Weight: 60 kg

DRUGS (32)
  1. PEMBROLIZUMAB [Suspect]
     Active Substance: PEMBROLIZUMAB
     Indication: Non-small cell lung cancer
     Dosage: 200 MILLIGRAM, Q3W
     Route: 050
     Dates: start: 20250506, end: 20251021
  2. PEMBROLIZUMAB [Suspect]
     Active Substance: PEMBROLIZUMAB
     Indication: Non-small cell lung cancer
     Route: 042
     Dates: start: 20251021, end: 20251021
  3. PEMBROLIZUMAB [Suspect]
     Active Substance: PEMBROLIZUMAB
     Indication: Non-small cell lung cancer
     Route: 042
     Dates: start: 20250715, end: 20250715
  4. PEMBROLIZUMAB [Suspect]
     Active Substance: PEMBROLIZUMAB
     Indication: Non-small cell lung cancer
     Route: 042
     Dates: start: 20250916, end: 20250916
  5. PEMBROLIZUMAB [Suspect]
     Active Substance: PEMBROLIZUMAB
     Indication: Non-small cell lung cancer
     Route: 042
     Dates: start: 20250805, end: 20250805
  6. PEMBROLIZUMAB [Suspect]
     Active Substance: PEMBROLIZUMAB
     Indication: Non-small cell lung cancer
     Route: 042
     Dates: start: 20250527, end: 20250527
  7. PEMBROLIZUMAB [Suspect]
     Active Substance: PEMBROLIZUMAB
     Indication: Non-small cell lung cancer
     Route: 042
     Dates: start: 20250506, end: 20250506
  8. PEMBROLIZUMAB [Suspect]
     Active Substance: PEMBROLIZUMAB
     Indication: Non-small cell lung cancer
     Route: 042
     Dates: start: 20250624, end: 20250624
  9. PEMBROLIZUMAB [Suspect]
     Active Substance: PEMBROLIZUMAB
     Indication: Non-small cell lung cancer
     Route: 042
     Dates: start: 20250826, end: 20250826
  10. HYDROCHLOROTHIAZIDE [Concomitant]
     Active Substance: HYDROCHLOROTHIAZIDE
     Indication: Hypertension
     Dosage: 25 MG, DAILY
     Route: 048
     Dates: start: 20250303
  11. ATORVASTATIN CALCIUM [Concomitant]
     Active Substance: ATORVASTATIN CALCIUM
     Indication: Hyperlipidaemia
     Dosage: 40 MG DAILY
     Route: 048
     Dates: start: 20250612
  12. GABAPENTIN [Concomitant]
     Active Substance: GABAPENTIN
     Indication: Paraesthesia
     Dosage: 300 MG, DAILY
     Route: 048
     Dates: start: 20250408, end: 20250412
  13. GABAPENTIN [Concomitant]
     Active Substance: GABAPENTIN
     Indication: Paraesthesia
     Dosage: 200 MG, DAILY
     Route: 048
     Dates: start: 20250826
  14. GABAPENTIN [Concomitant]
     Active Substance: GABAPENTIN
     Indication: Paraesthesia
     Dosage: 100 MG, DAILY
     Route: 048
     Dates: start: 20250715, end: 20250825
  15. STOOL SOFTENER (DOCUSATE) [Concomitant]
     Active Substance: DOCUSATE
     Indication: Constipation
     Dosage: 100 MG, ONCE EVERY 2 WK
     Route: 048
     Dates: start: 2023
  16. LOSARTAN POTASSIUM [Concomitant]
     Active Substance: LOSARTAN POTASSIUM
     Indication: Hypertension
     Dosage: 100 MG, DAILY
     Route: 048
     Dates: start: 2015
  17. SIMVASTATIN [Concomitant]
     Active Substance: SIMVASTATIN
     Indication: Hyperlipidaemia
     Dosage: 80 MG, DAILY
     Route: 048
     Dates: start: 2015
  18. CLOPIDOGREL BISULFATE [Concomitant]
     Active Substance: CLOPIDOGREL BISULFATE
     Indication: Embolism arterial
     Dosage: 75 MG DAILY
     Route: 048
     Dates: start: 20250613
  19. DOCUSATE SODIUM [Concomitant]
     Active Substance: DOCUSATE SODIUM
     Indication: Constipation
     Dosage: 100 MG, ONCE EVERY 2 WK
     Route: 050
     Dates: start: 2023
  20. IBUPROFEN [Concomitant]
     Active Substance: IBUPROFEN
     Indication: Product used for unknown indication
     Dosage: 800 MILLIGRAM, TID
     Route: 048
     Dates: start: 20241108
  21. CLONAZEPAM [Concomitant]
     Active Substance: CLONAZEPAM
     Indication: Anxiety
     Dosage: TWICE PER DAY
     Route: 048
     Dates: start: 20250221
  22. LOTRIMIN [CLOTRIMAZOLE] [Concomitant]
     Indication: Fungal infection
     Dosage: 1 %, BID (TWICE PER DAY)
     Route: 003
     Dates: start: 20250430
  23. TRAMADOL HYDROCHLORIDE [Concomitant]
     Active Substance: TRAMADOL HYDROCHLORIDE
     Indication: Foot fracture
     Dosage: 100 MG, BID (TWICE PER DAY)
     Route: 048
     Dates: start: 20250908
  24. TRAMADOL HYDROCHLORIDE [Concomitant]
     Active Substance: TRAMADOL HYDROCHLORIDE
     Indication: Foot fracture
     Dosage: 50 MG OTHER
     Route: 048
     Dates: start: 20250527, end: 20250907
  25. DIAZEPAM [Concomitant]
     Active Substance: DIAZEPAM
     Indication: Anxiety
     Dosage: 10 MG, DAILY
     Route: 048
     Dates: start: 20241201
  26. PREDNISONE [Concomitant]
     Active Substance: PREDNISONE
     Indication: Flushing
     Dosage: 30 MG DAILY
     Route: 048
     Dates: start: 20250619, end: 20250620
  27. PREDNISONE [Concomitant]
     Active Substance: PREDNISONE
     Indication: Flushing
     Dosage: 20 MG DAILY
     Route: 048
     Dates: start: 20250621, end: 20250622
  28. PREDNISONE [Concomitant]
     Active Substance: PREDNISONE
     Indication: Flushing
     Dosage: 10 MG DAILY
     Route: 048
     Dates: start: 20250623, end: 20250724
  29. PREDNISONE [Concomitant]
     Active Substance: PREDNISONE
     Indication: Flushing
     Dosage: 60 MG DAILY
     Route: 048
     Dates: start: 20250615, end: 20250616
  30. PREDNISONE [Concomitant]
     Active Substance: PREDNISONE
     Indication: Flushing
     Dosage: 40 MG DAILY
     Route: 048
     Dates: start: 20250617, end: 20250618
  31. ASPIRIN [Concomitant]
     Active Substance: ASPIRIN
     Indication: Hypertension
     Dosage: 81 MG, DAILY
     Route: 048
     Dates: start: 2015
  32. POTASSIUM CHLORIDE [Concomitant]
     Active Substance: POTASSIUM CHLORIDE
     Indication: Hypokalaemia
     Dosage: 20 MILLIEQUIVALENT, TID
     Route: 050
     Dates: start: 20251111

REACTIONS (1)
  - Hepatitis [Recovered/Resolved]

NARRATIVE: CASE EVENT DATE: 20251111
